FAERS Safety Report 7867804-4 (Version None)
Quarter: 2011Q4

REPORT INFORMATION
  Report Type: 
  Country: None (occurrence: None)
  Receive Date: 20111028
  Receipt Date: 20111025
  Transmission Date: 20120403
  Serious: Yes (Hospitalization, Other)
  Sender: FDA-Public Use
  Company Number: US-ROXANE LABORATORIES, INC.-2011-RO-01532RO

PATIENT
  Age: 66 Year
  Sex: Female

DRUGS (7)
  1. AZATHIOPRINE [Suspect]
     Indication: RENAL TRANSPLANT
  2. CYCLOSPORINE [Suspect]
     Indication: RENAL TRANSPLANT
  3. PREDNISONE [Suspect]
     Indication: IMMUNOSUPPRESSION
  4. AZATHIOPRINE [Suspect]
     Indication: IMMUNOSUPPRESSION
  5. CYCLOSPORINE [Suspect]
     Indication: IMMUNOSUPPRESSION
  6. FEBUXOSTAT [Suspect]
     Indication: GOUT
     Dosage: 40 MG
  7. PREDNISONE [Suspect]
     Indication: RENAL TRANSPLANT

REACTIONS (5)
  - EPSTEIN-BARR VIRUS TEST POSITIVE [None]
  - ANAEMIA [None]
  - INFLUENZA B VIRUS TEST POSITIVE [None]
  - PANCYTOPENIA [None]
  - GASTROINTESTINAL DISORDER [None]
